FAERS Safety Report 9583365 (Version 1)
Quarter: 2013Q4

REPORT INFORMATION
  Report Type: Spontaneous
  Country: US (occurrence: US)
  Receive Date: 20131002
  Receipt Date: 20131002
  Transmission Date: 20140711
  Serious: No
  Sender: FDA-Public Use
  Company Number: US-AMGEN-USASP2013046564

PATIENT
  Age: 50 Year
  Sex: Female
  Weight: 72.56 kg

DRUGS (5)
  1. ENBREL [Suspect]
     Indication: PRODUCT USED FOR UNKNOWN INDICATION
     Dosage: 50 MG, QWK
     Route: 058
  2. MULTIVITAMINS, PLAIN [Concomitant]
     Dosage: UNK
  3. LOVASTATIN [Concomitant]
     Dosage: 20 MG, UNK
  4. METOPROLOL [Concomitant]
     Dosage: 50 MG, UNK
  5. PREVACID [Concomitant]
     Dosage: 15 MG, UNK

REACTIONS (3)
  - Condition aggravated [Unknown]
  - Bronchitis [Unknown]
  - Sinusitis [Unknown]
